FAERS Safety Report 6510139-2 (Version None)
Quarter: 2009Q4

REPORT INFORMATION
  Report Type: 
  Country: None (occurrence: None)
  Receive Date: 20091222
  Receipt Date: 20091214
  Transmission Date: 20100525
  Serious: Yes (Other)
  Sender: FDA-Public Use
  Company Number: B0616622A

PATIENT
  Age: 73 Year
  Sex: Female

DRUGS (1)
  1. SERETIDE [Suspect]
     Indication: ASTHMA
     Dosage: 7000MCG PER DAY
     Route: 055

REACTIONS (2)
  - OVERDOSE [None]
  - SPLENOMEGALY [None]
